FAERS Safety Report 5486956-7 (Version None)
Quarter: 2007Q4

REPORT INFORMATION
  Report Type: 
  Country: None (occurrence: None)
  Receive Date: 20071012
  Receipt Date: 20071012
  Transmission Date: 20080405
  Serious: Yes (Other)
  Sender: FDA-Public Use
  Company Number: None

PATIENT
  Age: 34 Year
  Sex: Female
  Weight: 78.9259 kg

DRUGS (1)
  1. REGLAN [Suspect]

REACTIONS (5)
  - DYSKINESIA [None]
  - DYSPNOEA [None]
  - HALLUCINATION [None]
  - RESTLESSNESS [None]
  - TREMOR [None]
